FAERS Safety Report 4464735-7 (Version None)
Quarter: 2004Q4

REPORT INFORMATION
  Report Type: 
  Country: None (occurrence: None)
  Receive Date: 20041004
  Receipt Date: 20040625
  Transmission Date: 20050328
  Serious: No
  Sender: FDA-Public Use
  Company Number: 374039

PATIENT
  Age: 73 Year
  Sex: Male

DRUGS (5)
  1. COREG [Suspect]
     Indication: HYPERTENSION
     Dosage: 3.125MG THREE TIMES PER DAY
     Route: 048
  2. ZESTRIL [Concomitant]
  3. AVODART [Concomitant]
  4. FLOMAX [Concomitant]
  5. ZOCOR [Concomitant]

REACTIONS (1)
  - FATIGUE [None]
